FAERS Safety Report 4687341-8 (Version None)
Quarter: 2005Q2

REPORT INFORMATION
  Report Type: 
  Country: None (occurrence: None)
  Receive Date: 20050608
  Receipt Date: 20050524
  Transmission Date: 20051028
  Serious: Yes (Death)
  Sender: FDA-Public Use
  Company Number: 2005S1004005

PATIENT
  Age: 75 Year
  Sex: Female

DRUGS (2)
  1. CLOZAPINE [Suspect]
     Indication: DEMENTIA ALZHEIMER'S TYPE
     Dosage: 25 MG; QD; PO
     Route: 048
     Dates: end: 20050412
  2. CLOZAPINE [Suspect]
     Indication: PSYCHOTIC DISORDER
     Dosage: 25 MG; QD; PO
     Route: 048
     Dates: end: 20050412

REACTIONS (1)
  - DEATH [None]
